FAERS Safety Report 11037144 (Version 3)
Quarter: 2018Q4

REPORT INFORMATION
  Report Type: Spontaneous
  Country: US (occurrence: US)
  Receive Date: 20150416
  Receipt Date: 20181021
  Transmission Date: 20190204
  Serious: Yes (Hospitalization, Other)
  Sender: FDA-Public Use
  Company Number: US-JNJFOC-20150403418

PATIENT
  Sex: Female

DRUGS (1)
  1. DURAGESIC [Suspect]
     Active Substance: FENTANYL
     Indication: PAIN
     Route: 062

REACTIONS (11)
  - Dependence [Unknown]
  - Underdose [Unknown]
  - Hypertension [Unknown]
  - Vomiting [Unknown]
  - Wrong technique in product usage process [Unknown]
  - Feeling of body temperature change [Unknown]
  - Diarrhoea [Unknown]
  - Product dose omission [Unknown]
  - Confusional state [Unknown]
  - Inappropriate schedule of product administration [Not Recovered/Not Resolved]
  - Product adhesion issue [Unknown]
